FAERS Safety Report 21890091 (Version 1)
Quarter: 2023Q1

REPORT INFORMATION
  Report Type: Spontaneous
  Country: US (occurrence: US)
  Receive Date: 20230120
  Receipt Date: 20230120
  Transmission Date: 20230417
  Serious: Yes (Hospitalization)
  Sender: FDA-Public Use
  Company Number: US-MYLANLABS-2023M1004858

PATIENT
  Age: 43 Year
  Sex: Female
  Weight: 97 kg

DRUGS (16)
  1. HEPARIN [Suspect]
     Active Substance: HEPARIN SODIUM
     Indication: Hypertriglyceridaemia
     Dosage: UNK; 5000 UNITS/8 HOURS
     Route: 058
  2. INSULIN NOS [Suspect]
     Active Substance: INSULIN NOS
     Indication: Hypertriglyceridaemia
     Dosage: UNK; 10 UNITS/H; INTRAVENOUS INFUSION
     Route: 042
  3. INSULIN NOS [Suspect]
     Active Substance: INSULIN NOS
     Dosage: UNK; 15 UNITS/H UNTIL DAY7 OF HOSPITALISATION; INTRAVENOUS INFUSION
     Route: 042
  4. INSULIN NOS [Suspect]
     Active Substance: INSULIN NOS
     Dosage: UNK; 0.2 UNITS/KG/H, APPROXIMATELY 19 UNITS/H, UNTIL DAY9 OF HOSPITALISATION; INTRAVENOUS INFUSION
     Route: 042
  5. INSULIN NOS [Suspect]
     Active Substance: INSULIN NOS
     Dosage: UNK; 25 UNITS/H ON DAY9; INTRAVENOUS INFUSION
     Route: 042
  6. ACETAMINOPHEN\HYDROCODONE [Concomitant]
     Active Substance: ACETAMINOPHEN\HYDROCODONE
     Indication: Pain
     Dosage: UNK
     Route: 048
  7. ACETAMINOPHEN\HYDROCODONE [Concomitant]
     Active Substance: ACETAMINOPHEN\HYDROCODONE
     Indication: Pancreatitis acute
  8. MORPHINE [Concomitant]
     Active Substance: MORPHINE
     Indication: Pain
     Dosage: 2 MILLIGRAM
     Route: 042
  9. MORPHINE [Concomitant]
     Active Substance: MORPHINE
     Indication: Pancreatitis acute
  10. OMEGA-3-ACID ETHYL ESTER [Concomitant]
     Active Substance: OMEGA-3-ACID ETHYL ESTERS
     Indication: Hypertriglyceridaemia
     Dosage: 2 GRAM, BID
     Route: 048
  11. ATORVASTATIN [Concomitant]
     Active Substance: ATORVASTATIN
     Indication: Hypertriglyceridaemia
     Dosage: 20 MILLIGRAM, QD
     Route: 048
  12. ICOSAPENT ETHYL [Concomitant]
     Active Substance: ICOSAPENT ETHYL
     Indication: Hypertriglyceridaemia
     Dosage: 2 GRAM, BID
     Route: 048
  13. ROSUVASTATIN [Concomitant]
     Active Substance: ROSUVASTATIN
     Indication: Hypertriglyceridaemia
     Dosage: 5 MILLIGRAM, QD
     Route: 048
  14. DEXTROSE [Concomitant]
     Active Substance: DEXTROSE
     Indication: Fluid replacement
     Dosage: 150 MILLILITER, QH
     Route: 065
  15. DEXTROSE [Concomitant]
     Active Substance: DEXTROSE
     Dosage: 200 MILLILITER, QH
     Route: 065
  16. SODIUM CHLORIDE [Concomitant]
     Active Substance: SODIUM CHLORIDE
     Indication: Fluid replacement
     Dosage: UNK
     Route: 042

REACTIONS (2)
  - Blood triglycerides increased [Recovered/Resolved]
  - Off label use [Recovering/Resolving]
